FAERS Safety Report 16193322 (Version 2)
Quarter: 2019Q3

REPORT INFORMATION
  Report Type: Spontaneous
  Country: US (occurrence: US)
  Receive Date: 20190413
  Receipt Date: 20190814
  Transmission Date: 20191004
  Serious: No
  Sender: FDA-Public Use
  Company Number: US-TEVA-2019-US-1027425

PATIENT
  Sex: Male

DRUGS (1)
  1. CLONAZEPAM TABLET ACTAVIS [Suspect]
     Active Substance: CLONAZEPAM
     Route: 065

REACTIONS (6)
  - Product substitution issue [Unknown]
  - Hypoaesthesia [Unknown]
  - Tremor [Unknown]
  - Headache [Unknown]
  - Therapeutic product effect decreased [Unknown]
  - Nerve injury [Unknown]
